FAERS Safety Report 13220569 (Version 1)
Quarter: 2017Q1

REPORT INFORMATION
  Report Type: Other
  Country: US (occurrence: US)
  Receive Date: 20170211
  Receipt Date: 20170211
  Transmission Date: 20170428
  Serious: No
  Sender: FDA-Public Use
  Company Number: US-ACORDA-ACO_128336_2016

PATIENT
  Age: 52 Year
  Sex: Female
  Weight: 52.15 kg

DRUGS (3)
  1. ARANESP [Concomitant]
     Active Substance: DARBEPOETIN ALFA
     Indication: PRODUCT USED FOR UNKNOWN INDICATION
  2. AMPYRA [Suspect]
     Active Substance: DALFAMPRIDINE
     Indication: MULTIPLE SCLEROSIS
     Dosage: 10 MG, BID
     Route: 048
     Dates: start: 20150217
  3. TECFIDERA [Concomitant]
     Active Substance: DIMETHYL FUMARATE
     Indication: PRODUCT USED FOR UNKNOWN INDICATION

REACTIONS (2)
  - Muscular weakness [Not Recovered/Not Resolved]
  - Bladder spasm [Unknown]

NARRATIVE: CASE EVENT DATE: 201608
